FAERS Safety Report 20721179 (Version 2)
Quarter: 2022Q2

REPORT INFORMATION
  Report Type: Spontaneous
  Country: US (occurrence: US)
  Receive Date: 20220418
  Receipt Date: 20220509
  Transmission Date: 20220720
  Serious: No
  Sender: FDA-Public Use
  Company Number: US-KARYOPHARM-2022KPT000292

PATIENT

DRUGS (11)
  1. XPOVIO [Suspect]
     Active Substance: SELINEXOR
     Indication: Astrocytoma
     Dosage: 80 MG, WEEKLY
     Route: 048
     Dates: start: 20220308
  2. AVASTIN [Concomitant]
     Active Substance: BEVACIZUMAB
  3. BACTRIM [Concomitant]
     Active Substance: SULFAMETHOXAZOLE\TRIMETHOPRIM
  4. DEXAMETHASONE [Concomitant]
     Active Substance: DEXAMETHASONE
  5. EMEND [Concomitant]
     Active Substance: APREPITANT
  6. ESCITALOPRAM [Concomitant]
     Active Substance: ESCITALOPRAM OXALATE
  7. GLEOSTINE [Concomitant]
     Active Substance: LOMUSTINE
  8. ZOFRAN [Concomitant]
     Active Substance: ONDANSETRON HYDROCHLORIDE
  9. PROCHLORPERAZINE [Concomitant]
     Active Substance: PROCHLORPERAZINE
  10. KEPPRA [Concomitant]
     Active Substance: LEVETIRACETAM
  11. MODAFINIL [Concomitant]
     Active Substance: MODAFINIL

REACTIONS (4)
  - Constipation [Unknown]
  - Abdominal pain upper [Unknown]
  - Fatigue [Unknown]
  - Off label use [Unknown]

NARRATIVE: CASE EVENT DATE: 20220308
